FAERS Safety Report 23250933 (Version 3)
Quarter: 2024Q1

REPORT INFORMATION
  Report Type: Report from Study
  Country: RU (occurrence: RU)
  Receive Date: 20231201
  Receipt Date: 20240102
  Transmission Date: 20240410
  Serious: Yes (Hospitalization, Other)
  Sender: FDA-Public Use
  Company Number: RU-002147023-NVSC2023RU253545

PATIENT
  Age: 61 Year
  Sex: Male
  Weight: 76 kg

DRUGS (5)
  1. TAFINLAR [Suspect]
     Active Substance: DABRAFENIB MESYLATE
     Indication: Malignant melanoma
     Dosage: 150 MG, BID
     Route: 048
     Dates: start: 20231023, end: 20231122
  2. TAFINLAR [Suspect]
     Active Substance: DABRAFENIB MESYLATE
     Dosage: 100 MG
     Route: 048
  3. MEKINIST [Suspect]
     Active Substance: TRAMETINIB DIMETHYL SULFOXIDE
     Indication: Malignant melanoma
     Dosage: 2 MG, QD
     Route: 048
     Dates: start: 20231023, end: 20231122
  4. MEKINIST [Suspect]
     Active Substance: TRAMETINIB DIMETHYL SULFOXIDE
     Dosage: 1.5 MG
     Route: 048
  5. DEXAMETHASONE [Concomitant]
     Active Substance: DEXAMETHASONE
     Indication: Product used for unknown indication
     Dosage: 12 MG, QD
     Route: 065

REACTIONS (4)
  - Inflammation [Recovered/Resolved]
  - COVID-19 [Recovered/Resolved]
  - Body temperature increased [Recovering/Resolving]
  - Hypotension [Recovering/Resolving]

NARRATIVE: CASE EVENT DATE: 20231118
